FAERS Safety Report 7594063-2 (Version None)
Quarter: 2011Q3

REPORT INFORMATION
  Report Type: 
  Country: None (occurrence: None)
  Receive Date: 20110706
  Receipt Date: 20110627
  Transmission Date: 20111222
  Serious: Yes (Disabling)
  Sender: FDA-Public Use
  Company Number: FR-ASTRAZENECA-2011SE38944

PATIENT
  Age: 69 Year
  Sex: Female

DRUGS (2)
  1. AZATHIOPRINE SODIUM [Concomitant]
     Indication: AUTOIMMUNE HEPATITIS
     Route: 048
  2. ENTOCORT EC [Suspect]
     Indication: AUTOIMMUNE HEPATITIS
     Route: 048

REACTIONS (1)
  - SPINAL COMPRESSION FRACTURE [None]
